FAERS Safety Report 21074090 (Version 2)
Quarter: 2022Q3

REPORT INFORMATION
  Report Type: Spontaneous
  Country: US (occurrence: US)
  Receive Date: 20220713
  Receipt Date: 20220805
  Transmission Date: 20221027
  Serious: Yes (Other)
  Sender: FDA-Public Use
  Company Number: US-BRISTOL-MYERS SQUIBB COMPANY-2022-064822

PATIENT
  Age: 71 Year
  Sex: Male

DRUGS (2)
  1. REVLIMID [Suspect]
     Active Substance: LENALIDOMIDE
     Indication: Plasma cell myeloma
     Route: 048
     Dates: start: 20210618
  2. REVLIMID [Suspect]
     Active Substance: LENALIDOMIDE
     Dosage: DAILY FOR 21 DAYS
     Route: 048
     Dates: start: 20220622

REACTIONS (9)
  - Skin irritation [Unknown]
  - Arthralgia [Unknown]
  - Groin pain [Unknown]
  - Arthralgia [Unknown]
  - Hyperhidrosis [Unknown]
  - Musculoskeletal chest pain [Unknown]
  - Muscle spasms [Unknown]
  - Chest pain [Recovered/Resolved]
  - Osteonecrosis [Unknown]
